FAERS Safety Report 6432514-7 (Version None)
Quarter: 2009Q4

REPORT INFORMATION
  Report Type: 
  Country: None (occurrence: None)
  Receive Date: 20091105
  Receipt Date: 20091021
  Transmission Date: 20100525
  Serious: Yes (Life-Threatening, Other)
  Sender: FDA-Public Use
  Company Number: A-CH2009-28504

PATIENT
  Age: 43 Year
  Sex: Male

DRUGS (12)
  1. TRACLEER [Suspect]
     Indication: PULMONARY ARTERIAL HYPERTENSION
     Dosage: ORAL
     Route: 048
     Dates: start: 20090923, end: 20090926
  2. KALETRA [Concomitant]
  3. TRUVADA [Concomitant]
  4. BACTRIM [Concomitant]
  5. LEVOTHYROXINE SODIUM [Concomitant]
  6. VITAMIN B1 AND B6 (THIAMINE, PYRIDOXINE) [Concomitant]
  7. NEXIUM [Concomitant]
  8. BISOPROLOL FUMARATE [Concomitant]
  9. COVERSYL (PERINDOPRIL) [Concomitant]
  10. LASIX [Concomitant]
  11. PRAVASTATIN SODIUM [Concomitant]
  12. ASPIRIN [Concomitant]

REACTIONS (3)
  - HYPOTENSION [None]
  - NEPHROPATHY TOXIC [None]
  - RENAL FAILURE ACUTE [None]
